FAERS Safety Report 13601664 (Version 1)
Quarter: 2017Q2

REPORT INFORMATION
  Report Type: Spontaneous
  Country: US (occurrence: US)
  Receive Date: 20170601
  Receipt Date: 20170601
  Transmission Date: 20170830
  Serious: No
  Sender: FDA-Public Use
  Company Number: US-BAUSCH-BL-2017-003851

PATIENT
  Sex: Male
  Weight: 90.8 kg

DRUGS (2)
  1. INSULIN [Concomitant]
     Active Substance: INSULIN NOS
     Indication: DIABETES MELLITUS
  2. ELIDEL [Suspect]
     Active Substance: PIMECROLIMUS
     Indication: VITILIGO
     Dosage: ONE APPLICATION TWICE DAILY
     Route: 061
     Dates: start: 201610

REACTIONS (2)
  - Off label use [Not Recovered/Not Resolved]
  - Therapeutic response unexpected [Unknown]

NARRATIVE: CASE EVENT DATE: 201610
